FAERS Safety Report 8379117-5 (Version None)
Quarter: 2012Q1

REPORT INFORMATION
  Report Type: 
  Country: None (occurrence: None)
  Receive Date: 20120323
  Receipt Date: 20110412
  Transmission Date: 20120608
  Serious: Yes (Hospitalization)
  Sender: FDA-Public Use
  Company Number: 163-21880-11032832

PATIENT
  Age: 84 Year
  Sex: Male
  Weight: 74.9 kg

DRUGS (11)
  1. DEXAMETHASONE [Concomitant]
  2. TYLENOL (PARACETAMOL) (UNKNOWN) [Concomitant]
  3. KAPIDEX (DEXLANSOPRAZOLE) (UNKNOWN) [Concomitant]
  4. MULTIVITAMINS (MULTIVITAMINS) (UNKNOWN) [Concomitant]
  5. BABY ASPIRIN (ACETYLSALICYLIC ACID) (UNKNOWN) [Concomitant]
  6. BACTRIM DS (BACTRIM) (UNKNOWN) [Concomitant]
  7. LIPITOR [Concomitant]
  8. VITAMIN C (ASCORBIC ACID) (UNKNOWN) [Concomitant]
  9. REVLIMID [Suspect]
     Indication: MULTIPLE MYELOMA
     Dosage: 10 MG, DAILY, DAYS 1-21, PO
     Route: 048
     Dates: start: 20110201
  10. BLOOD (BLOOD AND RELATED PRODUCTS) (INJECTION FOR INFUSION) [Concomitant]
  11. CALTRATE PLUS D(LEKOVIT CA) (UNKNOWN) [Concomitant]

REACTIONS (1)
  - FATIGUE [None]
